FAERS Safety Report 13193627 (Version 1)
Quarter: 2017Q1

REPORT INFORMATION
  Report Type: Spontaneous
  Country: US (occurrence: US)
  Receive Date: 20170207
  Receipt Date: 20170207
  Transmission Date: 20170428
  Serious: No
  Sender: FDA-Public Use
  Company Number: US-TEVA-725668USA

PATIENT
  Age: 45 Year
  Sex: Female

DRUGS (1)
  1. COPAXONE [Suspect]
     Active Substance: GLATIRAMER ACETATE
     Indication: MULTIPLE SCLEROSIS
     Route: 058
     Dates: start: 20160622

REACTIONS (3)
  - Tachycardia [Recovered/Resolved]
  - Chest pain [Recovered/Resolved]
  - Chest discomfort [Recovered/Resolved]

NARRATIVE: CASE EVENT DATE: 20161228
